FAERS Safety Report 4859309-X (Version None)
Quarter: 2005Q4

REPORT INFORMATION
  Report Type: 
  Country: None (occurrence: None)
  Receive Date: 20051219
  Receipt Date: 20041112
  Transmission Date: 20060501
  Serious: No
  Sender: FDA-Public Use
  Company Number: US-GLAXOSMITHKLINE-A0533689A

PATIENT
  Age: 37 Year
  Sex: Male

DRUGS (1)
  1. NICODERM CQ [Suspect]

REACTIONS (1)
  - NASOPHARYNGITIS [None]
